FAERS Safety Report 10154751 (Version 1)
Quarter: 2014Q2

REPORT INFORMATION
  Report Type: Spontaneous
  Country: US (occurrence: None)
  Receive Date: 20140502
  Receipt Date: 20140502
  Transmission Date: 20141212
  Serious: Yes (Hospitalization)
  Sender: FDA-Public Use
  Company Number: DAV-AE-HCTZ-14-05

PATIENT
  Age: 52 Year
  Sex: Female

DRUGS (4)
  1. HYDROCHLOROTHIAZIDE [Suspect]
     Indication: HYPERTENSION
     Route: 048
  2. LISINOPRIL [Concomitant]
  3. METOPROLOL [Concomitant]
  4. HIGHLY ACTIVE ANTIRETROVIRAL THERAPY (HAART) [Concomitant]

REACTIONS (6)
  - Syncope [None]
  - Dehydration [None]
  - Blood pressure increased [None]
  - Dizziness [None]
  - Disease recurrence [None]
  - Therapy cessation [None]
